FAERS Safety Report 5472182-4 (Version None)
Quarter: 2007Q3

REPORT INFORMATION
  Report Type: 
  Country: None (occurrence: None)
  Receive Date: 20070925
  Receipt Date: 20070913
  Transmission Date: 20080115
  Serious: Yes (Hospitalization)
  Sender: FDA-Public Use
  Company Number: GXKR2007US07062

PATIENT
  Sex: Male
  Weight: 3.4 kg

DRUGS (4)
  1. PAROXETINE HCL [Suspect]
     Dosage: TRANSPLACENTAL
     Route: 064
  2. CLONAZEPAM [Suspect]
     Dosage: TRANSPLACENTAL
     Route: 064
  3. OLANZAPINE [Suspect]
     Dosage: TRANSPLACENTAL
     Route: 064
  4. AMPICILLIN [Concomitant]

REACTIONS (11)
  - APGAR SCORE LOW [None]
  - DRUG EXPOSURE DURING PREGNANCY [None]
  - DRUG TOXICITY [None]
  - DRUG WITHDRAWAL SYNDROME NEONATAL [None]
  - FEEDING DISORDER NEONATAL [None]
  - FOOD INTOLERANCE [None]
  - METABOLIC ACIDOSIS [None]
  - NEONATAL DISORDER [None]
  - NEONATAL HYPONATRAEMIA [None]
  - NEONATAL RESPIRATORY FAILURE [None]
  - SLEEP DISORDER [None]
